FAERS Safety Report 12869399 (Version 1)
Quarter: 2016Q4

REPORT INFORMATION
  Report Type: Spontaneous
  Country: US (occurrence: US)
  Receive Date: 20161019
  Receipt Date: 20161019
  Transmission Date: 20170207
  Serious: Yes (Hospitalization)
  Sender: FDA-Public Use
  Company Number: None

PATIENT
  Age: 79 Year
  Sex: Male
  Weight: 70.5 kg

DRUGS (2)
  1. WARFARIN [Suspect]
     Active Substance: WARFARIN
     Indication: ATRIAL FIBRILLATION
     Dosage: MG EVERY DAY PO
     Route: 048
     Dates: start: 20000815
  2. ASPIRIN. [Suspect]
     Active Substance: ASPIRIN
     Route: 048
     Dates: start: 20160224

REACTIONS (8)
  - Gastrointestinal haemorrhage [None]
  - Gastric ulcer [None]
  - Chest pain [None]
  - Anaemia [None]
  - Oesophageal disorder [None]
  - Gastric haemorrhage [None]
  - International normalised ratio increased [None]
  - Angiopathy [None]

NARRATIVE: CASE EVENT DATE: 20160817
